FAERS Safety Report 8029304 (Version 3)
Quarter: 2013Q2

REPORT INFORMATION
  Report Type: Report from Study
  Country: MX (occurrence: MX)
  Receive Date: 20110711
  Receipt Date: 20130508
  Transmission Date: 20140414
  Serious: Yes (Hospitalization, Other)
  Sender: FDA-Public Use
  Company Number: PHHY2011MX57441

PATIENT
  Age: 83 Year
  Sex: Female

DRUGS (4)
  1. RASILEZ HCT [Suspect]
     Indication: HYPERTENSION
     Dosage: 1 DF, DAILY
     Dates: start: 200811, end: 201106
  2. INSULIN [Concomitant]
     Indication: DIABETES MELLITUS MANAGEMENT
     Dosage: 12 IU, (EVERY 12 HRS)
     Dates: start: 2005
  3. NIMPREX [Concomitant]
     Dosage: 2 DF, DAILY
  4. LIPITOR [Concomitant]
     Indication: BLOOD CHOLESTEROL ABNORMAL
     Dosage: 1 DF, DAILY
     Dates: start: 2009

REACTIONS (4)
  - Cerebral infarction [Recovered/Resolved]
  - Gait disturbance [Unknown]
  - Movement disorder [Recovered/Resolved]
  - Blood pressure inadequately controlled [Unknown]
